FAERS Safety Report 8956237 (Version 1)
Quarter: 2012Q4

REPORT INFORMATION
  Report Type: Report from Study
  Country: BE (occurrence: BE)
  Receive Date: 20121210
  Receipt Date: 20121210
  Transmission Date: 20130627
  Serious: Yes (Hospitalization)
  Sender: FDA-Public Use
  Company Number: BE-SANOFI-AVENTIS-2012SA087713

PATIENT
  Age: 29 Year
  Sex: Female
  Weight: 115 kg

DRUGS (9)
  1. DOCETAXEL [Suspect]
     Indication: HER-2 POSITIVE BREAST CANCER
     Dosage: form: vials
dose level: 75mg/m2
     Route: 042
     Dates: start: 20090907, end: 20090925
  2. DOCETAXEL [Suspect]
     Indication: HER-2 POSITIVE BREAST CANCER
     Dosage: form: vials
     Route: 042
     Dates: start: 20091002
  3. BEVACIZUMAB [Suspect]
     Indication: HER-2 POSITIVE BREAST CANCER
     Dosage: form: vials
dose level: 15 mg/kg
     Route: 042
     Dates: start: 20090907, end: 20090925
  4. BEVACIZUMAB [Suspect]
     Indication: HER-2 POSITIVE BREAST CANCER
     Dosage: form: vials
     Route: 042
     Dates: end: 20100125
  5. TRASTUZUMAB [Suspect]
     Indication: HER-2 POSITIVE BREAST CANCER
     Dosage: form: vials
dose level: 6mg/kg
     Route: 042
     Dates: start: 20090907, end: 20090925
  6. TRASTUZUMAB [Suspect]
     Indication: HER-2 POSITIVE BREAST CANCER
     Dosage: form: vials
     Route: 042
     Dates: start: 20091009, end: 20100125
  7. TRASTUZUMAB [Suspect]
     Indication: HER-2 POSITIVE BREAST CANCER
     Dosage: form: vials
     Route: 042
     Dates: start: 20100203
  8. CARBOPLATIN [Suspect]
     Indication: HER-2 POSITIVE BREAST CANCER
     Dosage: form: vials
dose level: 6AUC
     Route: 042
     Dates: start: 20090907, end: 20090925
  9. CARBOPLATIN [Suspect]
     Indication: HER-2 POSITIVE BREAST CANCER
     Dosage: form: vials
     Route: 042
     Dates: start: 20091002

REACTIONS (3)
  - Mammary fistula [Recovered/Resolved]
  - Staphylococcal infection [Recovered/Resolved]
  - Staphylococcal sepsis [Recovered/Resolved]
